FAERS Safety Report 9917771 (Version 2)
Quarter: 2014Q1

REPORT INFORMATION
  Report Type: Spontaneous
  Country: US (occurrence: US)
  Receive Date: 20140221
  Receipt Date: 20140312
  Transmission Date: 20141002
  Serious: No
  Sender: FDA-Public Use
  Company Number: US-PFIZER INC-2014050487

PATIENT
  Age: 64 Year
  Sex: Female
  Weight: 48.98 kg

DRUGS (2)
  1. CHANTIX [Suspect]
     Indication: SMOKING CESSATION THERAPY
     Dosage: 0.5 MG, 1X/DAY
  2. LIPITOR [Suspect]
     Dosage: UNK

REACTIONS (1)
  - Bronchitis chronic [Not Recovered/Not Resolved]
